FAERS Safety Report 7232705-1 (Version None)
Quarter: 2011Q1

REPORT INFORMATION
  Report Type: 
  Country: None (occurrence: None)
  Receive Date: 20110106
  Receipt Date: 20101227
  Transmission Date: 20110831
  Serious: Yes (Other)
  Sender: FDA-Public Use
  Company Number: A0902535A

PATIENT
  Sex: Female

DRUGS (1)
  1. BENZOYL PEROXIDE + SALICYLIC ACID (FORMULATION UNKNOWN) (BENZOYL PEROX [Suspect]
     Indication: PRODUCT USED FOR UNKNOWN INDICATION
     Dosage: TOPICAL
     Route: 061
     Dates: start: 20101030, end: 20101201

REACTIONS (7)
  - HYPERSENSITIVITY [None]
  - STEVENS-JOHNSON SYNDROME [None]
  - HYPERAESTHESIA [None]
  - PAIN OF SKIN [None]
  - SKIN IRRITATION [None]
  - CHEMICAL INJURY [None]
  - SKIN BURNING SENSATION [None]
